FAERS Safety Report 9321201 (Version 2)
Quarter: 2013Q3

REPORT INFORMATION
  Report Type: Spontaneous
  Country: US (occurrence: US)
  Receive Date: 20130531
  Receipt Date: 20130717
  Transmission Date: 20140515
  Serious: Yes (Hospitalization)
  Sender: FDA-Public Use
  Company Number: US-PERRIGO-13US005575

PATIENT
  Age: 46 Year
  Sex: Male
  Weight: 64.85 kg

DRUGS (1)
  1. NICOTINE MINI MINT 4 MG 957 [Suspect]
     Indication: SMOKING CESSATION THERAPY
     Dosage: 40 MG; TOTAL OF 10 DF
     Route: 002
     Dates: start: 201305, end: 201305

REACTIONS (8)
  - Cardiac disorder [Recovered/Resolved]
  - Chest pain [Recovered/Resolved]
  - Heart rate increased [Recovered/Resolved]
  - Blood pressure increased [Unknown]
  - Headache [Recovered/Resolved]
  - Nervousness [Recovered/Resolved]
  - Tobacco abuse [Recovered/Resolved]
  - Wrong technique in drug usage process [Recovered/Resolved]
